FAERS Safety Report 6097516-1 (Version None)
Quarter: 2009Q1

REPORT INFORMATION
  Report Type: 
  Country: None (occurrence: None)
  Receive Date: 20090227
  Receipt Date: 20080908
  Transmission Date: 20090719
  Serious: No
  Sender: FDA-Public Use
  Company Number: A0747355A

PATIENT
  Sex: Female

DRUGS (4)
  1. IMITREX [Suspect]
     Route: 065
  2. TOPAMAX [Suspect]
     Route: 065
  3. MAXALT [Suspect]
     Route: 065
  4. REMERON [Suspect]
     Route: 065

REACTIONS (1)
  - DRUG INEFFECTIVE [None]
